FAERS Safety Report 5793930-X (Version None)
Quarter: 2008Q2

REPORT INFORMATION
  Report Type: 
  Country: None (occurrence: None)
  Receive Date: 20080627
  Receipt Date: 20080618
  Transmission Date: 20081010
  Serious: Yes (Other)
  Sender: FDA-Public Use
  Company Number: US-BAYER-200812035BCC

PATIENT
  Age: 88 Year
  Sex: Female
  Weight: 64 kg

DRUGS (10)
  1. BAYER EXTRA STRENGTH PLUS [Suspect]
     Indication: PAIN IN EXTREMITY
     Dosage: UNIT DOSE: 500 MG
     Route: 048
     Dates: start: 19980101
  2. BAYER EXTRA STRENGTH PLUS [Suspect]
     Dosage: UNIT DOSE: 500 MG
     Route: 048
  3. PROPRANOLOL [Concomitant]
  4. HYDROCHLOROTHIAZIDE [Concomitant]
  5. CALCIUM [Concomitant]
  6. MAGNESIUM [Concomitant]
  7. VITAMIN B COMPLEX CAP [Concomitant]
  8. VITAMIN A [Concomitant]
  9. VITAMIN E [Concomitant]
  10. ZINC [Concomitant]

REACTIONS (3)
  - MACULAR DEGENERATION [None]
  - OEDEMA PERIPHERAL [None]
  - PAIN [None]
